FAERS Safety Report 26066153 (Version 1)
Quarter: 2025Q4

REPORT INFORMATION
  Report Type: Spontaneous
  Country: US (occurrence: US)
  Receive Date: 20251119
  Receipt Date: 20251119
  Transmission Date: 20260117
  Serious: Yes (Other)
  Sender: FARMAKEIO OUTSOURCING LLC
  Company Number: US-FarmaKeio Outsourcing, LLC-2188904

PATIENT
  Age: 44 Year
  Sex: Male
  Weight: 121.82 kg

DRUGS (1)
  1. TESTOSTERONE\TRIAMCINOLONE ACETONIDE [Suspect]
     Active Substance: TESTOSTERONE\TRIAMCINOLONE ACETONIDE
     Indication: Testicular disorder

REACTIONS (1)
  - Abscess [Recovering/Resolving]
